FAERS Safety Report 18328548 (Version 1)
Quarter: 2020Q3

REPORT INFORMATION
  Report Type: Spontaneous
  Country: US (occurrence: US)
  Receive Date: 20200929
  Receipt Date: 20200929
  Transmission Date: 20201103
  Serious: No
  Sender: FDA-Public Use
  Company Number: None

PATIENT
  Age: 59 Year
  Sex: Female

DRUGS (8)
  1. LISINOPRIL/HYDROCHLOROTHI [Concomitant]
  2. IBUPROFEN. [Concomitant]
     Active Substance: IBUPROFEN
  3. ASPIRIN LOW DOSE [Concomitant]
     Active Substance: ASPIRIN
  4. VITAMIN D?1000 [Concomitant]
  5. MULTIPLEVITAMIN [Concomitant]
  6. CALCIUM [Concomitant]
     Active Substance: CALCIUM
  7. ENBREL [Suspect]
     Active Substance: ETANERCEPT
     Indication: RHEUMATOID ARTHRITIS
     Route: 058
     Dates: start: 20191031
  8. SYNHROID [Concomitant]

REACTIONS (1)
  - Lung disorder [None]
